FAERS Safety Report 10232428 (Version 1)
Quarter: 2014Q2

REPORT INFORMATION
  Report Type: Spontaneous
  Country: US (occurrence: None)
  Receive Date: 20140611
  Receipt Date: 20140611
  Transmission Date: 20141212
  Serious: Yes (Congenital Anomaly)
  Sender: FDA-Public Use
  Company Number: None

PATIENT
  Age: 0 Day
  Sex: Female
  Weight: 3.4 kg

DRUGS (4)
  1. RIBAVIRIN [Suspect]
     Indication: HEPATITIS C
     Dates: end: 201205
  2. PEGINTERFERON ALFA-2A [Suspect]
     Indication: HEPATITIS C
     Route: 058
     Dates: end: 201205
  3. ALBUTEROL  /00139501/ (SALBUTAMOL) [Concomitant]
  4. PRENATAL VITAMINS /01549301/(ASCORBIC ACID, BIOTIN, MINERAL NOS, NICOTINIC ACID, RETINOL, TOCOPHEROL, VITAMIN B NOS, VITAMIN D NOS) [Concomitant]

REACTIONS (4)
  - Atrial septal defect [None]
  - Atrial septal defect [None]
  - Aorticopulmonary septal defect [None]
  - Maternal drugs affecting foetus [None]
